FAERS Safety Report 6426844-2 (Version None)
Quarter: 2009Q4

REPORT INFORMATION
  Report Type: 
  Country: None (occurrence: None)
  Receive Date: 20091030
  Receipt Date: 20091016
  Transmission Date: 20100525
  Serious: Yes (Hospitalization)
  Sender: FDA-Public Use
  Company Number: 2009AC000026

PATIENT
  Age: 50 Year
  Sex: Male
  Weight: 107.9561 kg

DRUGS (18)
  1. DIGOXIN [Suspect]
     Indication: ATRIAL FIBRILLATION
     Dosage: 0.375 MG, QD; PO
     Route: 048
     Dates: start: 20050825
  2. NADOLOL [Concomitant]
  3. FUROSEMIDE [Concomitant]
  4. JANTOVEN [Concomitant]
  5. LOVENOX [Concomitant]
  6. WARFARIN SODIUM [Concomitant]
  7. CYCLOBENZAPR [Concomitant]
  8. ACETAMINOPHEN AND HYDROCODONE BITARTRATE [Concomitant]
  9. AMOXICILLIN [Concomitant]
  10. CEFDINIR [Concomitant]
  11. CLARITHROMYC [Concomitant]
  12. ALBUTEROL [Concomitant]
  13. ZYPREXA [Concomitant]
  14. POTASSIUM CHLORIDE [Concomitant]
  15. SOMA BETAPACE [Concomitant]
  16. SOTALOL [Concomitant]
  17. TOPROL-XL [Concomitant]
  18. LIPITOR [Concomitant]

REACTIONS (22)
  - ATRIAL FIBRILLATION [None]
  - CARDIAC MURMUR [None]
  - CARDIOACTIVE DRUG LEVEL DECREASED [None]
  - CARDIOMEGALY [None]
  - COUGH [None]
  - DEPRESSION [None]
  - DIZZINESS [None]
  - DYSLIPIDAEMIA [None]
  - DYSPNOEA [None]
  - DYSPNOEA EXERTIONAL [None]
  - HEADACHE [None]
  - HEART RATE IRREGULAR [None]
  - INSOMNIA [None]
  - JOINT SWELLING [None]
  - MULTIPLE INJURIES [None]
  - NODAL RHYTHM [None]
  - PALPITATIONS [None]
  - PNEUMONIA [None]
  - PROTHROMBIN TIME PROLONGED [None]
  - SINUSITIS [None]
  - SPUTUM INCREASED [None]
  - TACHYCARDIA [None]
